FAERS Safety Report 24005250 (Version 1)
Quarter: 2024Q2

REPORT INFORMATION
  Report Type: Spontaneous
  Country: US (occurrence: US)
  Receive Date: 20240624
  Receipt Date: 20240624
  Transmission Date: 20240716
  Serious: No
  Sender: FDA-Public Use
  Company Number: US-ROCHE-10000002775

PATIENT

DRUGS (2)
  1. CATHFLO ACTIVASE [Suspect]
     Active Substance: ALTEPLASE
     Indication: Product used for unknown indication
     Route: 065
  2. BACTERIOSTATIC WATER [Concomitant]
     Active Substance: WATER

REACTIONS (2)
  - Intercepted product preparation error [Unknown]
  - No adverse event [Unknown]
